FAERS Safety Report 6134156-X (Version None)
Quarter: 2009Q1

REPORT INFORMATION
  Report Type: 
  Country: None (occurrence: None)
  Receive Date: 20090325
  Receipt Date: 20090311
  Transmission Date: 20090719
  Serious: Yes (Other)
  Sender: FDA-Public Use
  Company Number: VAL_00242_2009

PATIENT
  Sex: Male

DRUGS (3)
  1. ROCALTROL [Suspect]
     Indication: PROSTATE CANCER METASTATIC
     Dosage: (0.5 UG/KG 1X/WEEK ORAL)
     Route: 048
  2. TAXOTERE [Suspect]
     Indication: PROSTATE CANCER METASTATIC
     Dosage: (36 MG/M2 1X/WEEK)
  3. DEXAMETHASONE 4MG TAB [Concomitant]

REACTIONS (24)
  - ANAEMIA [None]
  - ANGINA PECTORIS [None]
  - ANOREXIA [None]
  - ASPARTATE AMINOTRANSFERASE INCREASED [None]
  - BLOOD CREATINE INCREASED [None]
  - CATHETER RELATED INFECTION [None]
  - CLOSTRIDIUM DIFFICILE COLITIS [None]
  - DEEP VEIN THROMBOSIS [None]
  - DERMATITIS [None]
  - DRUG ADMINISTRATION ERROR [None]
  - DRUG TOXICITY [None]
  - FATIGUE [None]
  - HYPERCALCAEMIA [None]
  - HYPERGLYCAEMIA [None]
  - HYPOCALCAEMIA [None]
  - LEUKOPENIA [None]
  - MALIGNANT NEOPLASM PROGRESSION [None]
  - NEUROPATHY PERIPHERAL [None]
  - NEUTROPENIA [None]
  - OEDEMA [None]
  - ORGANISING PNEUMONIA [None]
  - PEPTIC ULCER [None]
  - PNEUMONIA [None]
  - PROSTATE CANCER [None]
